FAERS Safety Report 6790120-9 (Version None)
Quarter: 2010Q2

REPORT INFORMATION
  Report Type: 
  Country: None (occurrence: None)
  Receive Date: 20100624
  Receipt Date: 20100616
  Transmission Date: 20101027
  Serious: Yes (Hospitalization)
  Sender: FDA-Public Use
  Company Number: IE-NOVOPROD-308648

PATIENT
  Age: 72 Year
  Sex: Female
  Weight: 79 kg

DRUGS (13)
  1. VICTOZA [Suspect]
     Indication: TYPE 2 DIABETES MELLITUS
     Dosage: 0.6 MG, QD
     Route: 058
     Dates: start: 20100510, end: 20100513
  2. METFORMIN [Concomitant]
     Indication: TYPE 2 DIABETES MELLITUS
     Dosage: 3 G, QD
     Route: 048
  3. DIAMICRON [Concomitant]
     Indication: TYPE 2 DIABETES MELLITUS
     Dosage: 60 MG, QD
     Route: 048
  4. ISTIN [Concomitant]
     Dosage: 10 MG, QD
     Route: 048
     Dates: start: 20100513
  5. NATRILIX                           /00340101/ [Concomitant]
     Dosage: 1 MANE
     Dates: start: 20100510
  6. ZESTRIL [Concomitant]
     Dosage: 20 MG, QD
     Route: 048
     Dates: start: 20100510
  7. LASIX [Concomitant]
     Dosage: 20 MG, QD
     Route: 048
     Dates: start: 20100510
  8. ASPIRIN [Concomitant]
     Dosage: 75 MG, QD
     Route: 048
     Dates: start: 20100510
  9. LEXAPRO [Concomitant]
     Dosage: 5 MG, QD
     Route: 048
     Dates: start: 20100510
  10. LIPITOR [Concomitant]
     Dosage: 20 MG, QD
     Route: 048
     Dates: start: 20100510
  11. ZIMOVANE [Concomitant]
     Dosage: 75 MG, QD
  12. NATRILIX                           /00340101/ [Concomitant]
     Route: 048
  13. PANTOPRAZOL [Concomitant]
     Dosage: 40 UNK, UNK

REACTIONS (4)
  - ASTHENIA [None]
  - NAUSEA [None]
  - RASH [None]
  - VOMITING [None]
